FAERS Safety Report 23615773 (Version 2)
Quarter: 2024Q1

REPORT INFORMATION
  Report Type: Spontaneous
  Country: SG (occurrence: SG)
  Receive Date: 20240311
  Receipt Date: 20240325
  Transmission Date: 20240410
  Serious: Yes (Hospitalization)
  Sender: FDA-Public Use
  Company Number: SG-TEVA-VS-3166737

PATIENT
  Age: 74 Year
  Sex: Male

DRUGS (3)
  1. METFORMIN [Suspect]
     Active Substance: METFORMIN HYDROCHLORIDE
     Indication: Type 2 diabetes mellitus
     Dosage: TIME INTERVAL: 0.33333333 DAYS: THREE TIMES DAILY
     Route: 065
  2. ASPIRIN [Concomitant]
     Active Substance: ASPIRIN
     Indication: Cerebral infarction
     Route: 065
  3. CLOPIDOGREL [Concomitant]
     Active Substance: CLOPIDOGREL BISULFATE
     Indication: Cerebral infarction
     Route: 065

REACTIONS (8)
  - Metabolic acidosis [Recovering/Resolving]
  - Lactic acidosis [Recovering/Resolving]
  - Atrial fibrillation [Recovering/Resolving]
  - Acute kidney injury [Recovered/Resolved]
  - Electrolyte imbalance [Recovering/Resolving]
  - Delirium [Recovering/Resolving]
  - Euglycaemic diabetic ketoacidosis [Recovering/Resolving]
  - Physical deconditioning [Recovering/Resolving]
